FAERS Safety Report 7102926-7 (Version None)
Quarter: 2010Q4

REPORT INFORMATION
  Report Type: 
  Country: None (occurrence: None)
  Receive Date: 20101115
  Receipt Date: 20090715
  Transmission Date: 20110411
  Serious: No
  Sender: FDA-Public Use
  Company Number: US-KINGPHARMUSA00001-K200900834

PATIENT
  Sex: Male
  Weight: 81.633 kg

DRUGS (8)
  1. AVINZA [Suspect]
     Indication: THORACIC OUTLET SYNDROME
     Dosage: 180 MG, QD
     Route: 048
     Dates: start: 20090622
  2. NEURONTIN [Suspect]
     Indication: NEURALGIA
     Dosage: 200 MG, QAM
     Route: 048
  3. NEURONTIN [Suspect]
     Dosage: 100 MG, QD
     Route: 048
  4. NEURONTIN [Suspect]
     Dosage: 200 MG, QHS
     Route: 048
  5. OXYCODONE HCL [Concomitant]
     Dosage: 15 MG, UNK
     Route: 048
  6. SKELAXIN [Concomitant]
     Dosage: UNK
     Route: 048
  7. SOMA [Concomitant]
     Dosage: 175 MG, PRN
     Route: 048
  8. TYLENOL [Concomitant]
     Dosage: 1000 MG, PRN
     Route: 048

REACTIONS (4)
  - ABDOMINAL DISCOMFORT [None]
  - ABDOMINAL PAIN UPPER [None]
  - DYSPEPSIA [None]
  - NAUSEA [None]
